FAERS Safety Report 4273713-2 (Version None)
Quarter: 2004Q1

REPORT INFORMATION
  Report Type: 
  Country: None (occurrence: None)
  Receive Date: 20040119
  Receipt Date: 20040113
  Transmission Date: 20041129
  Serious: Yes (Hospitalization)
  Sender: FDA-Public Use
  Company Number: FR-ROCHE-355722

PATIENT
  Age: 39 Year
  Sex: Female

DRUGS (1)
  1. LOXEN [Suspect]
     Route: 041
     Dates: start: 20030420, end: 20030422

REACTIONS (2)
  - ACUTE PULMONARY OEDEMA [None]
  - TACHYCARDIA [None]
